FAERS Safety Report 24047746 (Version 2)
Quarter: 2024Q3

REPORT INFORMATION
  Report Type: Spontaneous
  Country: AU (occurrence: AU)
  Receive Date: 20240703
  Receipt Date: 20240715
  Transmission Date: 20241016
  Serious: Yes (Other)
  Sender: ANI
  Company Number: AU-ANIPHARMA-2024-AU-000296

PATIENT
  Age: 51 Year
  Sex: Male

DRUGS (22)
  1. CANDESARTAN [Suspect]
     Active Substance: CANDESARTAN
     Indication: Product used for unknown indication
  2. CALCITRIOL [Suspect]
     Active Substance: CALCITRIOL
  3. CEFTRIAXONE [Suspect]
     Active Substance: CEFTRIAXONE\CEFTRIAXONE SODIUM
  4. HYDRALAZINE HYDROCHLORIDE [Suspect]
     Active Substance: HYDRALAZINE HYDROCHLORIDE
  5. PANTOPRAZOLE SODIUM [Suspect]
     Active Substance: PANTOPRAZOLE SODIUM
  6. PRAVASTATIN SODIUM [Suspect]
     Active Substance: PRAVASTATIN SODIUM
  7. PREDNISOLONE [Suspect]
     Active Substance: PREDNISOLONE
  8. TACROLIMUS [Suspect]
     Active Substance: TACROLIMUS
  9. VORICONAZOLE [Suspect]
     Active Substance: VORICONAZOLE
  10. FUROSEMIDE [Suspect]
     Active Substance: FUROSEMIDE
  11. CHOLECALCIFEROL [Concomitant]
     Active Substance: CHOLECALCIFEROL
  12. CARVEDILOL [Suspect]
     Active Substance: CARVEDILOL
  13. EVEROLIMUS [Concomitant]
     Active Substance: EVEROLIMUS
  14. NICOTINAMIDE [Concomitant]
     Active Substance: NIACINAMIDE
  15. COTRIMOXAZOLE [Suspect]
     Active Substance: SULFAMETHOXAZOLE\TRIMETHOPRIM
  16. INSULIN ASPART [Concomitant]
     Active Substance: INSULIN ASPART
  17. SEMAGLUTIDE [Concomitant]
     Active Substance: SEMAGLUTIDE
  18. CLINDAMYCIN [Suspect]
     Active Substance: CLINDAMYCIN
  19. SULFAMETHOXAZOLE [Suspect]
     Active Substance: SULFAMETHOXAZOLE
  20. NITAZOXANIDE [Suspect]
     Active Substance: NITAZOXANIDE
  21. ALLOPURINOL [Suspect]
     Active Substance: ALLOPURINOL
  22. AMLODIPINE [Suspect]
     Active Substance: AMLODIPINE BESYLATE

REACTIONS (8)
  - Pneumocystis jirovecii infection [Unknown]
  - Coma scale abnormal [Unknown]
  - Disease progression [Unknown]
  - Microsporidia infection [Unknown]
  - Therapeutic product effect incomplete [Unknown]
  - Chest pain [Unknown]
  - Dyspnoea [Unknown]
  - Diarrhoea [Unknown]
